FAERS Safety Report 16033888 (Version 2)
Quarter: 2019Q1

REPORT INFORMATION
  Report Type: Spontaneous
  Country: JP (occurrence: JP)
  Receive Date: 20190305
  Receipt Date: 20190313
  Transmission Date: 20190418
  Serious: Yes (Hospitalization, Other)
  Sender: FDA-Public Use
  Company Number: JP-SAKK-2019SA056169AA

PATIENT
  Age: 79 Year
  Sex: Male

DRUGS (4)
  1. ZALTRAP [Suspect]
     Active Substance: ZIV-AFLIBERCEPT
     Indication: COLORECTAL CANCER RECURRENT
     Dosage: UNK
     Route: 041
     Dates: start: 20181108, end: 20190207
  2. IRINOTECAN HYDROCHLORIDE. [Concomitant]
     Active Substance: IRINOTECAN HYDROCHLORIDE
     Indication: COLORECTAL CANCER RECURRENT
     Route: 065
  3. FLUOROURACIL. [Concomitant]
     Active Substance: FLUOROURACIL
     Indication: COLORECTAL CANCER RECURRENT
     Route: 065
  4. LEVOFOLINATE [CALCIUM LEVOFOLINATE] [Concomitant]
     Active Substance: LEVOLEUCOVORIN CALCIUM
     Indication: COLORECTAL CANCER RECURRENT
     Route: 065

REACTIONS (4)
  - Proteinuria [Not Recovered/Not Resolved]
  - Proteinuria [Unknown]
  - Beta 2 microglobulin urine abnormal [Unknown]
  - Renal impairment [Unknown]

NARRATIVE: CASE EVENT DATE: 20190209
